FAERS Safety Report 12993463 (Version 1)
Quarter: 2016Q4

REPORT INFORMATION
  Report Type: Spontaneous
  Country: US (occurrence: US)
  Receive Date: 20161201
  Receipt Date: 20161201
  Transmission Date: 20170207
  Serious: No
  Sender: FDA-Public Use
  Company Number: None

PATIENT
  Age: 72 Year
  Sex: Female
  Weight: 55.79 kg

DRUGS (3)
  1. POTASSIUM CHLORIDE EXTENDED RELEASE 10-M OVAL YELLOW TABLET ZYDUS-ALPHA [Suspect]
     Active Substance: POTASSIUM CHLORIDE
     Indication: BLOOD POTASSIUM DECREASED
     Dosage: POTASSIUM CHLORIDE EXTENDED RELEASE 10-MEQ ER - QUANITY 30 2016 - QUANITY-90 SEPT 2016 - PO -QD
     Route: 048
     Dates: start: 20160921, end: 20160923
  2. CHLORTHALIDONE. [Concomitant]
     Active Substance: CHLORTHALIDONE
  3. CORICIDIN [Concomitant]
     Active Substance: ACETAMINOPHEN\CHLORPHENIRAMINE MALEATE

REACTIONS (11)
  - Rash [None]
  - Abdominal discomfort [None]
  - Myalgia [None]
  - Dyspnoea [None]
  - Heart rate increased [None]
  - Oropharyngeal pain [None]
  - Pyrexia [None]
  - Syncope [None]
  - Dizziness [None]
  - Headache [None]
  - Flatulence [None]

NARRATIVE: CASE EVENT DATE: 20160921
